FAERS Safety Report 4553392-7 (Version None)
Quarter: 2005Q1

REPORT INFORMATION
  Report Type: 
  Country: None (occurrence: None)
  Receive Date: 20050112
  Receipt Date: 20041228
  Transmission Date: 20050727
  Serious: Yes (Hospitalization)
  Sender: FDA-Public Use
  Company Number: US_0408104803

PATIENT
  Age: 38 Year
  Sex: Female
  Weight: 49 kg

DRUGS (3)
  1. GEMCITABINE HYDROCHLORIDE-IV (GEMCITABINE) [Suspect]
     Indication: CERVIX CARCINOMA
     Dosage: 178.95 MG WEEK
     Dates: start: 20040309, end: 20040714
  2. CISPLATIN (CISPLATAN PHARMACIA) [Suspect]
     Indication: CERVIX CARCINOMA
     Dosage: 57.2 MG OTHER
     Dates: start: 20040309, end: 20040714
  3. RADIOTHERAPY [Suspect]
     Indication: CERVIX CARCINOMA
     Dosage: 50.4 GRAY WEEK
     Dates: start: 20040309, end: 20040518

REACTIONS (24)
  - ANAEMIA [None]
  - BLADDER NECK OBSTRUCTION [None]
  - BLADDER NECK SCLEROSIS [None]
  - COAGULOPATHY [None]
  - CONSTIPATION [None]
  - CYSTITIS HAEMORRHAGIC [None]
  - DIARRHOEA [None]
  - DISCOMFORT [None]
  - HAEMATURIA [None]
  - HYDRONEPHROSIS [None]
  - HYPERTENSION [None]
  - HYPOCALCAEMIA [None]
  - HYPOPROTEINAEMIA [None]
  - NAUSEA [None]
  - RADIATION INJURY [None]
  - RADIATION SKIN INJURY [None]
  - RENAL FAILURE [None]
  - RENAL FAILURE ACUTE [None]
  - URETHRAL MEATUS STENOSIS [None]
  - URETHRAL OBSTRUCTION [None]
  - URETHRAL STRICTURE [None]
  - URINARY RETENTION [None]
  - URINARY TRACT INFECTION [None]
  - VOMITING [None]
